FAERS Safety Report 7078724-X (Version None)
Quarter: 2010Q4

REPORT INFORMATION
  Report Type: 
  Country: None (occurrence: None)
  Receive Date: 20101102
  Receipt Date: 20101021
  Transmission Date: 20110411
  Serious: Yes (Hospitalization)
  Sender: FDA-Public Use
  Company Number: US-SANOFI-AVENTIS-2010SA065208

PATIENT
  Age: 82 Year
  Sex: Female
  Weight: 79 kg

DRUGS (21)
  1. LOVENOX [Suspect]
     Indication: PULMONARY EMBOLISM
     Route: 058
     Dates: start: 20080314, end: 20080316
  2. HEPARIN [Suspect]
     Indication: PULMONARY EMBOLISM
     Dosage: DOSE:25000 UNIT(S)
     Route: 051
     Dates: start: 20080316, end: 20080316
  3. WARFARIN [Suspect]
     Indication: PULMONARY EMBOLISM
     Route: 048
     Dates: start: 20080314, end: 20080314
  4. WARFARIN [Suspect]
     Route: 048
     Dates: start: 20080316, end: 20080316
  5. AMIODARONE HCL [Suspect]
     Route: 048
     Dates: start: 20080301, end: 20080319
  6. MULTI-VITAMINS [Concomitant]
  7. CALCIUM CITRATE [Concomitant]
  8. ASPIRIN [Concomitant]
  9. HYDROCHLOROTHIAZIDE [Concomitant]
  10. DIGITEK [Concomitant]
  11. LEVOTHYROXINE [Concomitant]
  12. CARTIA XT [Concomitant]
  13. ALL OTHER THERAPEUTIC PRODUCTS [Concomitant]
  14. ALL OTHER THERAPEUTIC PRODUCTS [Concomitant]
  15. ARICEPT [Concomitant]
  16. FOSAMAX [Concomitant]
  17. GLUCOSAMINE [Concomitant]
  18. PRILOSEC [Concomitant]
  19. GLUCOSAMINE [Concomitant]
  20. NAMENDA [Concomitant]
  21. ALL OTHER THERAPEUTIC PRODUCTS [Concomitant]

REACTIONS (18)
  - ACTIVATED PARTIAL THROMBOPLASTIN TIME PROLONGED [None]
  - ACUTE RESPIRATORY FAILURE [None]
  - ADRENAL INSUFFICIENCY [None]
  - ANAEMIA [None]
  - ATELECTASIS [None]
  - HYPERHIDROSIS [None]
  - HYPERKALAEMIA [None]
  - HYPOTENSION [None]
  - HYPOVOLAEMIA [None]
  - MENTAL STATUS CHANGES [None]
  - MUSCLE HAEMORRHAGE [None]
  - PLEURAL EFFUSION [None]
  - RENAL FAILURE ACUTE [None]
  - SEPSIS [None]
  - SHOCK HAEMORRHAGIC [None]
  - TACHYCARDIA [None]
  - THROMBOCYTOPENIA [None]
  - URINARY TRACT INFECTION [None]
